FAERS Safety Report 17393629 (Version 1)
Quarter: 2020Q1

REPORT INFORMATION
  Report Type: Report from Study
  Country: CO (occurrence: CO)
  Receive Date: 20200208
  Receipt Date: 20200208
  Transmission Date: 20200409
  Serious: Yes (Other)
  Sender: FDA-Public Use
  Company Number: PHHY2018CO201228

PATIENT
  Sex: Male
  Weight: 69 kg

DRUGS (2)
  1. SANDOSTATIN LAR DEPOT [Suspect]
     Active Substance: OCTREOTIDE ACETATE
     Indication: NEUROENDOCRINE TUMOUR
     Dosage: 30 MG, QMO
     Route: 030
     Dates: start: 20180812
  2. AFINITOR [Suspect]
     Active Substance: EVEROLIMUS
     Indication: NEUROENDOCRINE TUMOUR
     Dosage: UNK
     Route: 048

REACTIONS (6)
  - Lung disorder [Unknown]
  - Abdominal injury [Unknown]
  - Gastric mucosal lesion [Unknown]
  - Hepatic lesion [Unknown]
  - Malaise [Unknown]
  - Diarrhoea [Unknown]
